FAERS Safety Report 6271405-1 (Version None)
Quarter: 2009Q3

REPORT INFORMATION
  Report Type: 
  Country: None (occurrence: None)
  Receive Date: 20090717
  Receipt Date: 20090709
  Transmission Date: 20100115
  Serious: Yes (Other)
  Sender: FDA-Public Use
  Company Number: FR-ROCHE-643753

PATIENT
  Age: 32 Year
  Sex: Male

DRUGS (3)
  1. PEGASYS [Suspect]
     Route: 058
  2. COPEGUS [Suspect]
     Route: 048
  3. FACTOR VIII [Concomitant]
     Dates: start: 20030101

REACTIONS (3)
  - ANAEMIA [None]
  - MYELOCYTOSIS [None]
  - THROMBOCYTOPENIA [None]
